FAERS Safety Report 4826850-5 (Version None)
Quarter: 2005Q4

REPORT INFORMATION
  Report Type: 
  Country: None (occurrence: None)
  Receive Date: 20051014
  Receipt Date: 20050705
  Transmission Date: 20060501
  Serious: No
  Sender: FDA-Public Use
  Company Number: 2005SP001734

PATIENT
  Age: 37 Year
  Sex: Female
  Weight: 92.5338 kg

DRUGS (4)
  1. LUNESTA [Suspect]
     Indication: SLEEP DISORDER
     Dosage: 2 MG;HS;ORAL
     Route: 048
     Dates: start: 20050701, end: 20050701
  2. LO/OVRAL [Concomitant]
  3. ZOLOFT [Concomitant]
  4. TYLENOL (CAPLET) [Concomitant]

REACTIONS (4)
  - DRUG INEFFECTIVE [None]
  - INSOMNIA [None]
  - SOMNOLENCE [None]
  - URTICARIA [None]
